FAERS Safety Report 10378461 (Version 4)
Quarter: 2014Q4

REPORT INFORMATION
  Report Type: Spontaneous
  Country: US (occurrence: US)
  Receive Date: 20140812
  Receipt Date: 20141006
  Transmission Date: 20150528
  Serious: Yes (Other)
  Sender: FDA-Public Use
  Company Number: US-SA-2014SA107532

PATIENT
  Age: 68 Year
  Sex: Female
  Weight: 57.16 kg

DRUGS (3)
  1. VIVELLE [Concomitant]
     Active Substance: ESTRADIOL
     Indication: HOT FLUSH
     Dosage: 2 PATCHES PER WEEK
     Route: 065
     Dates: start: 2002
  2. NASACORT ALLERGY 24HR [Suspect]
     Active Substance: TRIAMCINOLONE ACETONIDE
     Indication: HYPERSENSITIVITY
     Dosage: DOSE: 1 DOSE IN EACH NOSTRIL??FORM: INHALER
     Route: 065
     Dates: start: 20140201, end: 20140630
  3. PROGESTERONE. [Concomitant]
     Active Substance: PROGESTERONE
     Indication: HOT FLUSH
     Dosage: EVERY OTHER DAY
     Dates: start: 2002

REACTIONS (3)
  - Blindness [Recovered/Resolved]
  - Condition aggravated [Recovered/Resolved]
  - Aura [Recovered/Resolved]

NARRATIVE: CASE EVENT DATE: 20140301
